FAERS Safety Report 17465049 (Version 7)
Quarter: 2020Q3

REPORT INFORMATION
  Report Type: Spontaneous
  Country: DE (occurrence: DE)
  Receive Date: 20200227
  Receipt Date: 20200723
  Transmission Date: 20201102
  Serious: Yes (Life-Threatening, Hospitalization, Disabling, Other)
  Sender: FDA-Public Use
  Company Number: DE-BRISTOL-MYERS SQUIBB COMPANY-BMS-2020-016031

PATIENT
  Age: 58 Year
  Sex: Male
  Weight: 66 kg

DRUGS (1)
  1. OPDIVO [Suspect]
     Active Substance: NIVOLUMAB
     Indication: RENAL CELL CARCINOMA
     Dosage: 240 MILLIGRAM, Q2WK
     Route: 042
     Dates: start: 201807, end: 20191107

REACTIONS (10)
  - Hepatitis acute [Unknown]
  - Acute hepatic failure [Recovering/Resolving]
  - Thrombophlebitis [Recovering/Resolving]
  - Hepatic encephalopathy [Recovering/Resolving]
  - Hypothyroidism [Recovering/Resolving]
  - Hypertension [Unknown]
  - Pancreatitis [Recovering/Resolving]
  - Coma [Recovered/Resolved]
  - Acute kidney injury [Recovering/Resolving]
  - Hyponatraemia [Unknown]

NARRATIVE: CASE EVENT DATE: 201911
